FAERS Safety Report 4946345-8 (Version None)
Quarter: 2006Q1

REPORT INFORMATION
  Report Type: 
  Country: None (occurrence: None)
  Receive Date: 20060317
  Receipt Date: 20030924
  Transmission Date: 20060701
  Serious: Yes (Hospitalization)
  Sender: FDA-Public Use
  Company Number: PL-ABBOTT-03P-129-0234545-00

PATIENT
  Sex: Female
  Weight: 86 kg

DRUGS (1)
  1. SIBUTRAMINE [Suspect]
     Indication: OBESITY
     Route: 048
     Dates: start: 20030910, end: 20030918

REACTIONS (2)
  - PYELONEPHRITIS [None]
  - RENAL FAILURE [None]
